FAERS Safety Report 8175557-8 (Version None)
Quarter: 2012Q1

REPORT INFORMATION
  Report Type: 
  Country: None (occurrence: None)
  Receive Date: 20120301
  Receipt Date: 20120220
  Transmission Date: 20120608
  Serious: Yes (Other)
  Sender: FDA-Public Use
  Company Number: IT-BRISTOL-MYERS SQUIBB COMPANY-16408254

PATIENT
  Age: 72 Year
  Sex: Female

DRUGS (4)
  1. ABACAVIR SULFATE/LAMIVUDINE [Concomitant]
     Indication: HIV INFECTION
     Dates: start: 20120203, end: 20120217
  2. TRIZIVIR [Concomitant]
     Indication: HIV INFECTION
     Dates: start: 20070101, end: 20120202
  3. SUSTIVA [Suspect]
     Indication: HIV INFECTION
     Dates: start: 20120203, end: 20120206
  4. ASPIRIN [Concomitant]
     Indication: THROMBOSIS PROPHYLAXIS
     Dosage: SINCE 2 YEARS

REACTIONS (4)
  - CONFUSIONAL STATE [None]
  - PARAESTHESIA ORAL [None]
  - FEELING HOT [None]
  - IRRITABILITY [None]
